FAERS Safety Report 23021874 (Version 1)
Quarter: 2023Q4

REPORT INFORMATION
  Report Type: Spontaneous
  Country: CN (occurrence: CN)
  Receive Date: 20231003
  Receipt Date: 20231003
  Transmission Date: 20240110
  Serious: Yes (Other)
  Sender: FDA-Public Use
  Company Number: CN-SUN PHARMACEUTICAL INDUSTRIES LTD-2023R1-410145

PATIENT
  Age: 30 Year
  Sex: Female
  Weight: 48 kg

DRUGS (2)
  1. ENOXAPARIN SODIUM [Suspect]
     Active Substance: ENOXAPARIN SODIUM
     Indication: Ovarian hyperstimulation syndrome
     Dosage: 40 MILLIGRAM, DAILY
     Route: 058
  2. ASPIRIN [Suspect]
     Active Substance: ASPIRIN
     Indication: Ovarian hyperstimulation syndrome
     Dosage: 100 UNK
     Route: 048

REACTIONS (2)
  - Exposure during pregnancy [Unknown]
  - Hepatic function abnormal [Unknown]
